FAERS Safety Report 5580894-7 (Version None)
Quarter: 2007Q4

REPORT INFORMATION
  Report Type: 
  Country: None (occurrence: None)
  Receive Date: 20071130
  Receipt Date: 20070717
  Transmission Date: 20080405
  Serious: No
  Sender: FDA-Public Use
  Company Number: US200707004410

PATIENT
  Age: 51 Year
  Sex: Female

DRUGS (2)
  1. BYETTA [Suspect]
     Dosage: 10 UG
  2. BYETTA [Suspect]
     Dosage: 10 UG

REACTIONS (1)
  - BLOOD GLUCOSE INCREASED [None]
